FAERS Safety Report 9216719 (Version 1)
Quarter: 2013Q2

REPORT INFORMATION
  Report Type: Spontaneous
  Country: US (occurrence: US)
  Receive Date: 20130408
  Receipt Date: 20130408
  Transmission Date: 20140414
  Serious: Yes (Other)
  Sender: FDA-Public Use
  Company Number: US-PFIZER INC-2013107892

PATIENT
  Age: 36 Year
  Sex: Female
  Weight: 114.29 kg

DRUGS (8)
  1. LYRICA [Suspect]
     Indication: NEURALGIA
     Dosage: 50 MG, 2X/DAY
     Route: 048
     Dates: start: 201301, end: 2013
  2. LYRICA [Suspect]
     Dosage: 100MG CAPSULE AT NIGHT AND A 50MG CAPSULE IN MORNING
     Route: 048
     Dates: start: 2013, end: 2013
  3. LYRICA [Suspect]
     Dosage: 100 MG, 2X/DAY
     Route: 048
     Dates: start: 2013
  4. LYRICA [Suspect]
     Dosage: UNK
     Route: 048
     Dates: end: 201302
  5. VIIBRYD [Concomitant]
     Dosage: 20 MG, 1X/DAY
  6. LISINOPRIL [Concomitant]
     Dosage: 20 MG, 2X/DAY
  7. XANAX [Concomitant]
     Dosage: 0.5 MG, 2X/DAY
  8. AMITRIPTYLINE [Concomitant]
     Indication: MIGRAINE
     Dosage: 100 MG, 1X/DAY

REACTIONS (11)
  - Rhabdomyolysis [Not Recovered/Not Resolved]
  - Blood creatine phosphokinase increased [Unknown]
  - Renal disorder [Not Recovered/Not Resolved]
  - Weight increased [Unknown]
  - Inflammation [Unknown]
  - Red blood cell sedimentation rate increased [Unknown]
  - Hepatic enzyme increased [Unknown]
  - Blood creatinine abnormal [Unknown]
  - Blood urea abnormal [Unknown]
  - Pyrexia [Unknown]
  - Drug ineffective [Unknown]
